FAERS Safety Report 23277588 (Version 1)
Quarter: 2023Q4

REPORT INFORMATION
  Report Type: Spontaneous
  Country: US (occurrence: None)
  Receive Date: 20231207
  Receipt Date: 20231207
  Transmission Date: 20240110
  Serious: No
  Sender: FDA-Public Use
  Company Number: None

PATIENT
  Age: 61 Year
  Sex: Female
  Weight: 54 kg

DRUGS (12)
  1. AZITHROMYCIN [Suspect]
     Active Substance: AZITHROMYCIN
     Indication: Bronchitis
     Dosage: OTHER QUANTITY : 6 CAPSULE(S);?FREQUENCY : DAILY;?
     Route: 048
     Dates: start: 20231206, end: 20231207
  2. b-12 shots [Concomitant]
  3. FISH OIL [Concomitant]
     Active Substance: FISH OIL
  4. VITAMINS [Concomitant]
     Active Substance: VITAMINS
  5. CALCIUM [Concomitant]
     Active Substance: CALCIUM
  6. SELENIUM [Concomitant]
     Active Substance: SELENIUM
  7. SELENIUM [Concomitant]
     Active Substance: SELENIUM
  8. ZINC [Concomitant]
     Active Substance: PYRITHIONE ZINC\ZINC\ZINC CHLORIDE
  9. VITAMIN D NOS [Concomitant]
     Active Substance: VITAMIN D NOS
  10. VITAMIN C [Concomitant]
     Active Substance: ASCORBIC ACID
  11. POTASSIUM [Concomitant]
     Active Substance: POTASSIUM
  12. MAGNESIUM [Concomitant]
     Active Substance: MAGNESIUM

REACTIONS (5)
  - Diarrhoea [None]
  - Dizziness [None]
  - Initial insomnia [None]
  - Heart rate abnormal [None]
  - Insomnia [None]

NARRATIVE: CASE EVENT DATE: 20231206
